FAERS Safety Report 21978157 (Version 3)
Quarter: 2023Q4

REPORT INFORMATION
  Report Type: Spontaneous
  Country: US (occurrence: US)
  Receive Date: 20230210
  Receipt Date: 20231120
  Transmission Date: 20240109
  Serious: Yes (Death, Hospitalization, Other)
  Sender: FDA-Public Use
  Company Number: US-PFIZER INC-202300059039

PATIENT
  Age: 96 Year
  Sex: Male

DRUGS (1)
  1. VYNDAMAX [Suspect]
     Active Substance: TAFAMIDIS
     Dosage: 61 MG

REACTIONS (6)
  - Dysphagia [Fatal]
  - Fall [Unknown]
  - Spinal fracture [Unknown]
  - Head injury [Unknown]
  - Gastric ulcer haemorrhage [Unknown]
  - Skin ulcer [Unknown]
